FAERS Safety Report 16084362 (Version 1)
Quarter: 2019Q2

REPORT INFORMATION
  Report Type: Spontaneous
  Country: US (occurrence: US)
  Receive Date: 20190316
  Receipt Date: 20190316
  Transmission Date: 20190711
  Serious: No
  Sender: FDA-Public Use
  Company Number: None

PATIENT
  Age: 56 Year
  Sex: Female
  Weight: 31.5 kg

DRUGS (6)
  1. CALCIUM CITRATE [Concomitant]
     Active Substance: CALCIUM CITRATE
  2. STELLALIFE VEGA ORAL RISE [Suspect]
     Active Substance: HOMEOPATHICS
     Indication: SJOGREN^S SYNDROME
     Route: 048
     Dates: start: 20190126, end: 20190309
  3. TRIAMCOLONE DENTAL PASTE [Concomitant]
  4. BIOTENE MOUTHWASH SPRAY [Concomitant]
  5. GNC MULTIVITAMIN ACTIVE WOMEN [Concomitant]
  6. ITAMIN D [Concomitant]

REACTIONS (1)
  - Drug hypersensitivity [None]

NARRATIVE: CASE EVENT DATE: 20190129
